FAERS Safety Report 13632650 (Version 1)
Quarter: 2017Q2

REPORT INFORMATION
  Report Type: Spontaneous
  Country: US (occurrence: US)
  Receive Date: 20170531
  Receipt Date: 20170531
  Transmission Date: 20170830
  Serious: No
  Sender: FDA-Public Use
  Company Number: US-ASTELLAS-1470923

PATIENT
  Sex: Male

DRUGS (9)
  1. SILVADENE [Concomitant]
     Active Substance: SILVER SULFADIAZINE
  2. FUROSEMIDE. [Concomitant]
     Active Substance: FUROSEMIDE
  3. DOXAZOSIN MESYLATE. [Concomitant]
     Active Substance: DOXAZOSIN MESYLATE
  4. TARCEVA [Suspect]
     Active Substance: ERLOTINIB HYDROCHLORIDE
     Indication: LUNG NEOPLASM MALIGNANT
     Route: 048
     Dates: start: 20140711
  5. SIMVASTATIN. [Concomitant]
     Active Substance: SIMVASTATIN
  6. LORATADINE. [Concomitant]
     Active Substance: LORATADINE
     Indication: HYPERSENSITIVITY
  7. ASPIRIN. [Concomitant]
     Active Substance: ASPIRIN
  8. GABAPENTIN. [Concomitant]
     Active Substance: GABAPENTIN
  9. DIPHENHYDRAMINE HCL [Concomitant]
     Active Substance: DIPHENHYDRAMINE HYDROCHLORIDE

REACTIONS (1)
  - Disease progression [Unknown]
